FAERS Safety Report 5206685-4 (Version None)
Quarter: 2007Q1

REPORT INFORMATION
  Report Type: 
  Country: None (occurrence: None)
  Receive Date: 20070109
  Receipt Date: 20061127
  Transmission Date: 20070707
  Serious: Yes (Other)
  Sender: FDA-Public Use
  Company Number: JPKYO-S-20060043

PATIENT
  Age: 78 Year
  Sex: Male

DRUGS (2)
  1. NAVELBINE [Suspect]
     Indication: LUNG ADENOCARCINOMA STAGE IV
     Dosage: 33 MG IV
     Route: 042
     Dates: start: 20061113, end: 20061120
  2. CARBOPLATIN [Concomitant]

REACTIONS (2)
  - HYPOTHERMIA [None]
  - SOMNOLENCE [None]
